FAERS Safety Report 5485048-0 (Version None)
Quarter: 2007Q4

REPORT INFORMATION
  Report Type: 
  Country: None (occurrence: None)
  Receive Date: 20071015
  Receipt Date: 20071001
  Transmission Date: 20080405
  Serious: Yes (Death, Hospitalization, Other)
  Sender: FDA-Public Use
  Company Number: US-ELI_LILLY_AND_COMPANY-US200710000247

PATIENT
  Sex: Female

DRUGS (7)
  1. FORTEO [Suspect]
     Dates: start: 20061001
  2. NORVASC [Concomitant]
     Indication: HYPERTENSION
  3. PRAVACHOL [Concomitant]
     Indication: BLOOD CHOLESTEROL INCREASED
  4. DIOVAN [Concomitant]
  5. ALBUTEROL [Concomitant]
     Indication: CHRONIC OBSTRUCTIVE PULMONARY DISEASE
  6. COMBIVENT [Concomitant]
     Indication: CHRONIC OBSTRUCTIVE PULMONARY DISEASE
  7. TRAMADOL HCL [Concomitant]
     Indication: PAIN

REACTIONS (14)
  - ANOREXIA [None]
  - BALANCE DISORDER [None]
  - BLOOD ELECTROLYTES ABNORMAL [None]
  - BLOOD PRESSURE INCREASED [None]
  - CHRONIC OBSTRUCTIVE PULMONARY DISEASE [None]
  - COUGH [None]
  - DIZZINESS [None]
  - DYSPNOEA [None]
  - FALL [None]
  - NASOPHARYNGITIS [None]
  - OXYGEN SATURATION DECREASED [None]
  - PNEUMONIA [None]
  - STERNAL FRACTURE [None]
  - WEANING FAILURE [None]
